FAERS Safety Report 9398596 (Version 2)
Quarter: 2013Q3

REPORT INFORMATION
  Report Type: Spontaneous
  Country: BR (occurrence: BR)
  Receive Date: 20130712
  Receipt Date: 20130920
  Transmission Date: 20140515
  Serious: Yes (Other)
  Sender: FDA-Public Use
  Company Number: BR-ASTRAZENECA-2013SE50969

PATIENT
  Age: 25719 Day
  Sex: Female
  Weight: 56 kg

DRUGS (9)
  1. NEXIUM [Suspect]
     Indication: GASTROOESOPHAGEAL REFLUX DISEASE
     Route: 048
  2. CRESTOR [Suspect]
     Indication: BLOOD CHOLESTEROL INCREASED
     Route: 048
  3. BRILINTA [Suspect]
     Route: 048
     Dates: start: 2013
  4. CALCIUM [Concomitant]
     Indication: OSTEOPOROSIS
     Dosage: DAILY
  5. ACTONEL [Concomitant]
     Indication: OSTEOPOROSIS
     Dosage: WEEK
  6. ASPIRINA [Concomitant]
     Dates: start: 2013
  7. LOSARTAN POTASSIUM [Concomitant]
     Dates: start: 2013
  8. PREDSIN [Concomitant]
     Indication: SINUSITIS
     Dates: start: 20130909
  9. UNKNOWN ANTIBIOTIC [Concomitant]
     Indication: SINUSITIS
     Dates: start: 20130909

REACTIONS (5)
  - Blood pressure increased [Recovered/Resolved]
  - Osteoporosis [Unknown]
  - Angina pectoris [Recovered/Resolved]
  - Sinusitis [Recovering/Resolving]
  - Off label use [Not Recovered/Not Resolved]
